FAERS Safety Report 19946683 (Version 1)
Quarter: 2021Q4

REPORT INFORMATION
  Report Type: Spontaneous
  Country: BE (occurrence: BE)
  Receive Date: 20211012
  Receipt Date: 20211012
  Transmission Date: 20220303
  Serious: Yes (Other)
  Sender: FDA-Public Use
  Company Number: BE-PFIZER INC-202101328429

PATIENT
  Sex: Female

DRUGS (3)
  1. SALAZOPYRINE [Suspect]
     Active Substance: SULFASALAZINE
     Dosage: 500 MG, 1X/DAY
  2. AERIUS (DESLORATADINE) [Concomitant]
     Active Substance: DESLORATADINE
     Dosage: 5 MG, 1X/DAY
  3. ACETAMINOPHEN [Concomitant]
     Active Substance: ACETAMINOPHEN
     Dosage: UNK

REACTIONS (1)
  - Arrhythmia [Unknown]
